FAERS Safety Report 15022261 (Version 5)
Quarter: 2019Q3

REPORT INFORMATION
  Report Type: Spontaneous
  Country: CA (occurrence: CA)
  Receive Date: 20180618
  Receipt Date: 20190807
  Transmission Date: 20191004
  Serious: Yes (Hospitalization, Other)
  Sender: FDA-Public Use
  Company Number: CA-PFIZER INC-2017161109

PATIENT
  Age: 79 Year
  Sex: Female

DRUGS (4)
  1. CELEBREX [Concomitant]
     Active Substance: CELECOXIB
     Indication: RHEUMATOID ARTHRITIS
     Dosage: UNK
     Route: 048
  2. XELJANZ [Suspect]
     Active Substance: TOFACITINIB CITRATE
     Indication: RHEUMATOID ARTHRITIS
     Dosage: 5 MG, 2X/DAY
     Route: 048
     Dates: start: 20150509, end: 201902
  3. XELJANZ [Suspect]
     Active Substance: TOFACITINIB CITRATE
     Dosage: 5 MG, 2X/DAY
     Route: 048
     Dates: start: 201903
  4. METHOTREXATE. [Concomitant]
     Active Substance: METHOTREXATE
     Indication: RHEUMATOID ARTHRITIS
     Dosage: 15 MG, WEEKLY
     Route: 048
     Dates: end: 20160621

REACTIONS (13)
  - Depression [Unknown]
  - Pyrexia [Unknown]
  - Ankle fracture [Unknown]
  - Condition aggravated [Recovering/Resolving]
  - Oral herpes [Recovered/Resolved]
  - Cholelithiasis [Unknown]
  - Asthenia [Unknown]
  - Hypertension [Unknown]
  - Cerebrovascular accident [Unknown]
  - Inflammatory marker increased [Unknown]
  - Therapeutic product effect incomplete [Recovering/Resolving]
  - Sensitivity to weather change [Unknown]
  - Fatigue [Unknown]

NARRATIVE: CASE EVENT DATE: 20180602
